FAERS Safety Report 9746648 (Version 1)
Quarter: 2013Q4

REPORT INFORMATION
  Report Type: Spontaneous
  Country: US (occurrence: US)
  Receive Date: 20131211
  Receipt Date: 20131211
  Transmission Date: 20140711
  Serious: Yes (Other)
  Sender: FDA-Public Use
  Company Number: US-PFIZER INC-2013354654

PATIENT
  Age: 53 Year
  Sex: Female
  Weight: 108 kg

DRUGS (4)
  1. EFFEXOR XR [Suspect]
     Indication: DEPRESSION
     Dosage: 75 MG, 1X/DAY
  2. EFFEXOR XR [Suspect]
     Dosage: 150 MG, 1X/DAY
     Dates: end: 2013
  3. METOPROLOL [Concomitant]
     Indication: HYPERTENSION
     Dosage: UNK
  4. MECLIZINE [Concomitant]
     Indication: VERTIGO
     Dosage: UNK

REACTIONS (6)
  - Depression [Unknown]
  - Withdrawal syndrome [Unknown]
  - Abnormal behaviour [Unknown]
  - Dyspnoea [Unknown]
  - Tremor [Unknown]
  - Dysphemia [Unknown]
